FAERS Safety Report 7306320-5 (Version None)
Quarter: 2011Q1

REPORT INFORMATION
  Report Type: 
  Country: None (occurrence: None)
  Receive Date: 20110222
  Receipt Date: 20110209
  Transmission Date: 20110831
  Serious: Yes (Other)
  Sender: FDA-Public Use
  Company Number: PHHO2010FR05915

PATIENT
  Sex: Male

DRUGS (1)
  1. ACZ885 [Suspect]
     Indication: FAMILIAL COLD AUTOINFLAMMATORY SYNDROME

REACTIONS (1)
  - HEPATITIS C [None]
